FAERS Safety Report 14180590 (Version 1)
Quarter: 2017Q4

REPORT INFORMATION
  Report Type: Spontaneous
  Country: FR (occurrence: FR)
  Receive Date: 20171110
  Receipt Date: 20171110
  Transmission Date: 20180321
  Serious: Yes (Death, Other)
  Sender: FDA-Public Use
  Company Number: FR-INDIVIOR LIMITED-INDV-105961-2017

PATIENT
  Age: 37 Year
  Sex: Female

DRUGS (9)
  1. PHENERGAN [Suspect]
     Active Substance: PROMETHAZINE HYDROCHLORIDE
     Indication: PRODUCT USED FOR UNKNOWN INDICATION
     Dosage: 25 MG TWO TABLETS/DAY, PRESCRIPTION FOR 1 MONTH
     Route: 065
  2. BROMAZEPAM [Concomitant]
     Active Substance: BROMAZEPAM
     Indication: PRODUCT USED FOR UNKNOWN INDICATION
     Dosage: THREE TABLETS/DAY
     Route: 065
  3. SUBUTEX [Suspect]
     Active Substance: BUPRENORPHINE HYDROCHLORIDE
     Indication: DRUG USE DISORDER
     Dosage: 8MG PER DAY
     Route: 065
  4. HYDROXYZINE [Suspect]
     Active Substance: HYDROXYZINE HYDROCHLORIDE
     Indication: PRODUCT USED FOR UNKNOWN INDICATION
     Dosage: 100 MG, THREE TABLETS/DAY
     Route: 065
  5. SUBUTEX [Suspect]
     Active Substance: BUPRENORPHINE HYDROCHLORIDE
     Dosage: 6MG, PER DAY (RE-INITIATED)
     Route: 065
  6. PAXIL [Suspect]
     Active Substance: PAROXETINE HYDROCHLORIDE
     Indication: PRODUCT USED FOR UNKNOWN INDICATION
     Dosage: UNK
     Route: 065
  7. SUBUTEX [Suspect]
     Active Substance: BUPRENORPHINE HYDROCHLORIDE
     Dosage: 6MG PER DAY (INTERRUPTED)
     Route: 065
  8. MEPRONIZINE                        /00647801/ [Concomitant]
     Indication: PRODUCT USED FOR UNKNOWN INDICATION
     Dosage: TWO TABLETS/DAY
     Route: 065
  9. DEPAKENE [Concomitant]
     Active Substance: VALPROIC ACID
     Indication: PRODUCT USED FOR UNKNOWN INDICATION
     Dosage: 500 MG, THREE TABLETS/DAY
     Route: 065

REACTIONS (10)
  - Toxicity to various agents [Fatal]
  - Suicidal ideation [Unknown]
  - Therapy cessation [Recovered/Resolved]
  - Condition aggravated [Unknown]
  - Intentional self-injury [Unknown]
  - Pelvic pain [Unknown]
  - Drug abuse [Unknown]
  - Substance dependence [Unknown]
  - Overdose [Fatal]
  - Drug screen positive [Recovered/Resolved]
